FAERS Safety Report 9780687 (Version 1)
Quarter: 2013Q4

REPORT INFORMATION
  Report Type: Spontaneous
  Country: DE (occurrence: DE)
  Receive Date: 20131224
  Receipt Date: 20131224
  Transmission Date: 20140711
  Serious: Yes (Congenital Anomaly)
  Sender: FDA-Public Use
  Company Number: GXKR2013DE003867

PATIENT
  Sex: 0

DRUGS (9)
  1. AMIODARONE [Suspect]
     Indication: ARRHYTHMIA
     Dosage: MATERNAL DOSE 200 MG/D (0-6 PREGNANCY WEEK)
     Route: 064
  2. GABAPENTIN [Suspect]
     Dosage: 2400 [MG/D ] (0-8 PREGNANCY WEEK)
     Route: 064
  3. BISOPROLOL [Suspect]
     Dosage: 2.5 [MG/D ]
     Route: 064
     Dates: start: 20090801, end: 20100315
  4. AMITRIPTYLINE [Suspect]
     Indication: PAIN
     Dosage: 75 [MG/D ]
     Route: 064
     Dates: start: 20090801, end: 20100315
  5. BUPRENORPHINE [Suspect]
     Indication: PAIN
     Dosage: 70 [?G/H ]
     Route: 064
     Dates: start: 20090801
  6. OMEPRAZOLE [Concomitant]
     Route: 064
  7. MOVICOL [Concomitant]
     Dosage: UNK UKN, UNK
     Route: 064
     Dates: start: 20090801, end: 20100315
  8. ACETYLSALICYLIC ACID [Concomitant]
     Dosage: 100 [MG/D ]
     Route: 064
     Dates: start: 20090801, end: 20100315
  9. ACIDO FOLICO [Concomitant]
     Dosage: 0.4 [MG/D ]
     Route: 064

REACTIONS (3)
  - Ventricular septal defect [Recovered/Resolved]
  - Small for dates baby [Recovered/Resolved]
  - Atrial septal defect [Not Recovered/Not Resolved]
